FAERS Safety Report 13791039 (Version 1)
Quarter: 2017Q3

REPORT INFORMATION
  Report Type: Spontaneous
  Country: FR (occurrence: FR)
  Receive Date: 20170725
  Receipt Date: 20170725
  Transmission Date: 20171127
  Serious: Yes (Other)
  Sender: FDA-Public Use
  Company Number: FR-PFIZER INC-2017316811

PATIENT
  Age: 53 Year
  Sex: Female

DRUGS (4)
  1. NARDELZINE [Suspect]
     Active Substance: PHENELZINE SULFATE
     Indication: DEPRESSION
     Dosage: 15 MG, 1X/DAY
     Route: 048
     Dates: start: 20170606, end: 201706
  2. TERALITHE [Interacting]
     Active Substance: LITHIUM CARBONATE
     Indication: DEPRESSION
     Dosage: UNK
     Route: 048
     Dates: start: 20170603, end: 20170615
  3. NARDELZINE [Interacting]
     Active Substance: PHENELZINE SULFATE
     Dosage: UNK
     Route: 048
     Dates: start: 201706, end: 20170619
  4. XEROQUEL [Interacting]
     Active Substance: QUETIAPINE FUMARATE
     Indication: DEPRESSION
     Dosage: 400 MG, 1X/DAY
     Route: 048
     Dates: start: 20170602, end: 20170622

REACTIONS (3)
  - Drug interaction [Recovered/Resolved]
  - Malaise [Recovered/Resolved]
  - Hypotension [Recovered/Resolved]

NARRATIVE: CASE EVENT DATE: 20170608
